FAERS Safety Report 8851438 (Version 2)
Quarter: 2015Q2

REPORT INFORMATION
  Report Type: Report from Study
  Country: US (occurrence: US)
  Receive Date: 20121022
  Receipt Date: 20150423
  Transmission Date: 20150821
  Serious: Yes (Other)
  Sender: FDA-Public Use
  Company Number: US-ROCHE-1128959

PATIENT
  Sex: Female

DRUGS (1)
  1. NUTROPIN AQ [Suspect]
     Active Substance: SOMATROPIN
     Indication: DWARFISM
     Route: 058

REACTIONS (1)
  - Neoplasm [Unknown]
